FAERS Safety Report 16821097 (Version 1)
Quarter: 2019Q3

REPORT INFORMATION
  Report Type: Spontaneous
  Country: US (occurrence: US)
  Receive Date: 20190918
  Receipt Date: 20190918
  Transmission Date: 20191005
  Serious: Yes (Other)
  Sender: FDA-Public Use
  Company Number: US-ALIMERA SCIENCES LIMITED-US-IL-2018-004095

PATIENT
  Age: 48 Year
  Sex: Male

DRUGS (1)
  1. ILUVIEN [Suspect]
     Active Substance: FLUOCINOLONE ACETONIDE
     Indication: DIABETIC RETINAL OEDEMA
     Dosage: 0.25 ?G, QD - LEFT EYE
     Route: 031
     Dates: start: 20170223

REACTIONS (3)
  - Intraocular pressure increased [Not Recovered/Not Resolved]
  - Cataract operation [Recovered/Resolved]
  - Trabeculoplasty [Recovered/Resolved]

NARRATIVE: CASE EVENT DATE: 20170420
